FAERS Safety Report 20990563 (Version 3)
Quarter: 2022Q3

REPORT INFORMATION
  Report Type: Spontaneous
  Country: US (occurrence: US)
  Receive Date: 20220622
  Receipt Date: 20220718
  Transmission Date: 20221026
  Serious: Yes (Other)
  Sender: FDA-Public Use
  Company Number: US-MLMSERVICE-20220606-3597958-1

PATIENT
  Age: 15 Year
  Sex: Female

DRUGS (7)
  1. LAMOTRIGINE [Suspect]
     Active Substance: LAMOTRIGINE
     Indication: Major depression
     Dosage: 25 MILLIGRAM, ONCE A DAY (IN THE MORNING)
     Route: 048
     Dates: start: 2021
  2. LAMOTRIGINE [Suspect]
     Active Substance: LAMOTRIGINE
     Indication: Post-traumatic stress disorder
     Dosage: 25 MILLIGRAM, ONCE A DAY (AT BEDTIME)
     Route: 065
     Dates: start: 2021
  3. LAMOTRIGINE [Suspect]
     Active Substance: LAMOTRIGINE
     Dosage: 50 MILLIGRAM, ONCE A DAY (AT BEDTIME)
     Route: 065
     Dates: start: 2021
  4. BUPROPION [Concomitant]
     Active Substance: BUPROPION
     Indication: Eating disorder
     Dosage: UNK
     Route: 065
     Dates: start: 2021
  5. FLUOXETINE [Concomitant]
     Active Substance: FLUOXETINE HYDROCHLORIDE
     Indication: Major depression
     Dosage: UNK
     Route: 065
     Dates: start: 202101
  6. FLUOXETINE [Concomitant]
     Active Substance: FLUOXETINE HYDROCHLORIDE
     Indication: Post-traumatic stress disorder
     Dosage: 40 MILLIGRAM, ONCE A DAY (TITRATED TO 40MG DAILY)
     Route: 065
     Dates: start: 202104
  7. SERTRALINE [Concomitant]
     Active Substance: SERTRALINE HYDROCHLORIDE
     Indication: Depressive symptom
     Dosage: UNK
     Route: 065

REACTIONS (2)
  - Sinus bradycardia [Recovered/Resolved]
  - Off label use [Unknown]

NARRATIVE: CASE EVENT DATE: 20210101
